FAERS Safety Report 15376200 (Version 2)
Quarter: 2025Q4

REPORT INFORMATION
  Report Type: Spontaneous
  Country: AU (occurrence: AU)
  Receive Date: 20180912
  Receipt Date: 20251124
  Transmission Date: 20260117
  Serious: Yes (Hospitalization)
  Sender: PURDUE
  Company Number: AU-NAPPMUNDI-GBR-2018-0059270

PATIENT
  Age: 81 Year
  Sex: Female

DRUGS (3)
  1. NORSPAN [Suspect]
     Active Substance: BUPRENORPHINE
     Indication: Arthralgia
     Dosage: 5 MG, WEEKLY
     Route: 062
     Dates: start: 20180904
  2. NORSPAN [Suspect]
     Active Substance: BUPRENORPHINE
     Dosage: 15 MG, WEEKLY
     Route: 062
     Dates: start: 20180829, end: 20180902
  3. NORSPAN [Suspect]
     Active Substance: BUPRENORPHINE
     Dosage: 10 MG, WEEKLY
     Route: 062
     Dates: start: 201808

REACTIONS (3)
  - Renal failure [Recovered/Resolved]
  - Nausea [Recovered/Resolved]
  - Vomiting [Recovered/Resolved]

NARRATIVE: CASE EVENT DATE: 20180830
